FAERS Safety Report 22983830 (Version 2)
Quarter: 2023Q4

REPORT INFORMATION
  Report Type: Other
  Country: GB (occurrence: GB)
  Receive Date: 20230926
  Receipt Date: 20231011
  Transmission Date: 20240110
  Serious: Yes (Other)
  Sender: FDA-Public Use
  Company Number: GB-MHRA-MED-202309121932175900-BHMZG

PATIENT

DRUGS (1)
  1. ATOVAQUONE\PROGUANIL HYDROCHLORIDE [Suspect]
     Active Substance: ATOVAQUONE\PROGUANIL HYDROCHLORIDE
     Indication: Malaria
     Dosage: 250 MILLIGRAM, OD
     Route: 065
     Dates: start: 20230802, end: 20230807

REACTIONS (11)
  - Blister [Recovered/Resolved]
  - Rash [Recovered/Resolved]
  - Pruritus [Recovered/Resolved]
  - Diarrhoea [Recovered/Resolved]
  - Photosensitivity reaction [Recovered/Resolved]
  - Abdominal discomfort [Unknown]
  - Dry skin [Unknown]
  - Sunburn [Unknown]
  - Pain of skin [Unknown]
  - Sensitive skin [Unknown]
  - Erythema [Unknown]

NARRATIVE: CASE EVENT DATE: 20230804
